FAERS Safety Report 5381439-7 (Version None)
Quarter: 2007Q2

REPORT INFORMATION
  Report Type: 
  Country: None (occurrence: None)
  Receive Date: 20070629
  Receipt Date: 20070320
  Transmission Date: 20071010
  Serious: Yes (Other)
  Sender: FDA-Public Use
  Company Number: US200703004053

PATIENT
  Sex: Female

DRUGS (2)
  1. HUMALOG [Suspect]
     Indication: DIABETES MELLITUS
     Dates: start: 19970101
  2. INSULIN (INSULIN) [Concomitant]

REACTIONS (9)
  - AMNESIA [None]
  - ANGER [None]
  - BLOOD GLUCOSE DECREASED [None]
  - CONVULSION [None]
  - DYSKINESIA [None]
  - FRUSTRATION [None]
  - HYPERHIDROSIS [None]
  - INCOHERENT [None]
  - TEMPORAL LOBE EPILEPSY [None]
